FAERS Safety Report 11784252 (Version 2)
Quarter: 2016Q1

REPORT INFORMATION
  Report Type: Spontaneous
  Country: US (occurrence: US)
  Receive Date: 20151128
  Receipt Date: 20160203
  Transmission Date: 20160525
  Serious: Yes (Hospitalization, Other)
  Sender: FDA-Public Use
  Company Number: US-AMGEN-USASP2015123695

PATIENT
  Age: 92 Year
  Sex: Female
  Weight: 77.98 kg

DRUGS (10)
  1. PROCRIT [Suspect]
     Active Substance: ERYTHROPOIETIN
     Indication: HAEMOGLOBIN DECREASED
  2. REVATIO [Suspect]
     Active Substance: SILDENAFIL CITRATE
     Indication: PRODUCT USED FOR UNKNOWN INDICATION
     Dosage: 20 MG, TID
     Route: 048
     Dates: start: 201506, end: 20151014
  3. METOPROLOL. [Concomitant]
     Active Substance: METOPROLOL
     Indication: PRODUCT USED FOR UNKNOWN INDICATION
     Dosage: 25 MG, BID, (STARTED THREE YEARS AGO)
     Route: 048
     Dates: end: 20151014
  4. ENTRESTO [Concomitant]
     Active Substance: SACUBITRIL\VALSARTAN
     Dosage: UNK, (STARTED TWO MONTHS AGO)
     Dates: end: 20151014
  5. SERTRALINE [Concomitant]
     Active Substance: SERTRALINE HYDROCHLORIDE
     Indication: PRODUCT USED FOR UNKNOWN INDICATION
     Dosage: 100 MG, QD,  (STARTED THREE YEARS AGO)
     Route: 048
  6. ELIQUIS [Concomitant]
     Active Substance: APIXABAN
     Dosage: 2.5 MG, BID (STARTED ONE AND ONE-HALF YEARS AGO)
  7. SIMVASTATIN. [Concomitant]
     Active Substance: SIMVASTATIN
     Indication: PRODUCT USED FOR UNKNOWN INDICATION
     Dosage: 20 MG, QD, (STARTED FOUR YEARS AGO)
     Route: 048
  8. ALLOPURINOL. [Concomitant]
     Active Substance: ALLOPURINOL
     Dosage: 100 MG, QD  (STARTED ONE AND ONE-HALF YEARS AGO)
  9. KLOR-CON [Concomitant]
     Active Substance: POTASSIUM CHLORIDE
     Indication: BLOOD POTASSIUM
     Dosage: 10 MG, BID, (STARTED TWO YEARS AGO)
     Route: 048
  10. PROCRIT [Suspect]
     Active Substance: ERYTHROPOIETIN
     Indication: ANAEMIA
     Dosage: 50000 UNK, MONTHLY
     Route: 065
     Dates: start: 2015

REACTIONS (13)
  - Renal failure [Recovering/Resolving]
  - Oedema [Recovering/Resolving]
  - Blood count abnormal [Not Recovered/Not Resolved]
  - Thyroid disorder [Unknown]
  - Arthritis [Unknown]
  - Gastrooesophageal reflux disease [Unknown]
  - Cardiac failure [Unknown]
  - Anaemia [Unknown]
  - Osteoarthritis [Unknown]
  - Blood potassium increased [Recovered/Resolved]
  - Mitral valve replacement [Unknown]
  - Chronic obstructive pulmonary disease [Unknown]
  - Pulmonary hypertension [Unknown]

NARRATIVE: CASE EVENT DATE: 2007
